FAERS Safety Report 24939857 (Version 1)
Quarter: 2025Q1

REPORT INFORMATION
  Report Type: Spontaneous
  Country: US (occurrence: US)
  Receive Date: 20250207
  Receipt Date: 20250207
  Transmission Date: 20250409
  Serious: No
  Sender: SANOFI AVENTIS
  Company Number: US-SA-2025SA036320

PATIENT
  Age: 68 Year
  Sex: Female
  Weight: 91.71 kg

DRUGS (11)
  1. DUPIXENT [Suspect]
     Active Substance: DUPILUMAB
     Indication: Asthma
     Dates: start: 20241007
  2. CARVEDILOL [Concomitant]
     Active Substance: CARVEDILOL
  3. TOPIRAMATE [Concomitant]
     Active Substance: TOPIRAMATE
  4. TRELEGY ELLIPTA [Concomitant]
     Active Substance: FLUTICASONE FUROATE\UMECLIDINIUM BROMIDE\VILANTEROL TRIFENATATE
  5. SIMVASTATIN [Concomitant]
     Active Substance: SIMVASTATIN
  6. DICLOFENAC SODIUM [Concomitant]
     Active Substance: DICLOFENAC SODIUM
     Route: 048
  7. LISINOPRIL [Concomitant]
     Active Substance: LISINOPRIL
  8. DESVENLAFAXINE [Concomitant]
     Active Substance: DESVENLAFAXINE
  9. FAMOTIDINE [Concomitant]
     Active Substance: FAMOTIDINE
  10. MONTELUKAST [Concomitant]
     Active Substance: MONTELUKAST
  11. ESOMEPRAZOLE [Concomitant]
     Active Substance: ESOMEPRAZOLE

REACTIONS (1)
  - Injection site pain [Unknown]
